FAERS Safety Report 13671417 (Version 1)
Quarter: 2017Q2

REPORT INFORMATION
  Report Type: Spontaneous
  Country: US (occurrence: US)
  Receive Date: 20170620
  Receipt Date: 20170620
  Transmission Date: 20170830
  Serious: No
  Sender: FDA-Public Use
  Company Number: US-ROCHE-1452005

PATIENT
  Sex: Male

DRUGS (1)
  1. XELODA [Suspect]
     Active Substance: CAPECITABINE
     Indication: NEOPLASM MALIGNANT
     Dosage: BID FOR 5 DAYS, THEN M-F EVERY WEEK AT RADIATION THERAPY
     Route: 048
     Dates: start: 20140722

REACTIONS (3)
  - Drug dose omission [Unknown]
  - Nausea [Unknown]
  - Influenza [Unknown]
